FAERS Safety Report 24869824 (Version 1)
Quarter: 2025Q1

REPORT INFORMATION
  Report Type: Spontaneous
  Country: US (occurrence: None)
  Receive Date: 20250120
  Receipt Date: 20250120
  Transmission Date: 20250409
  Serious: Yes (Life-Threatening, Hospitalization, Disabling, Other)
  Sender: FDA-CTU
  Company Number: None

PATIENT
  Age: 23 Year
  Sex: Male
  Weight: 90 kg

DRUGS (6)
  1. FLUOXETINE HCL [Suspect]
     Active Substance: FLUOXETINE
     Indication: Drug withdrawal syndrome
     Dosage: 1 TABLET AT BEDTIME ORAL ?
     Route: 048
     Dates: start: 20220726, end: 20220808
  2. ARIPIPRAZOLE [Suspect]
     Active Substance: ARIPIPRAZOLE
     Indication: Product used for unknown indication
     Dosage: 1 TABLET AT BEDTIME ORAL
     Route: 048
     Dates: start: 20220726, end: 20220809
  3. EFFEXOR [Suspect]
     Active Substance: VENLAFAXINE HYDROCHLORIDE
  4. HALDOL [Suspect]
     Active Substance: HALOPERIDOL
  5. QUVIVIQ [Concomitant]
     Active Substance: DARIDOREXANT
  6. GALANTAMINE [Concomitant]
     Active Substance: GALANTAMINE

REACTIONS (23)
  - Sexual dysfunction [None]
  - Suicidal ideation [None]
  - Off label use [None]
  - Weight decreased [None]
  - Dry mouth [None]
  - Akathisia [None]
  - Fatigue [None]
  - Constipation [None]
  - Chills [None]
  - Temperature intolerance [None]
  - Myalgia [None]
  - Dystonia [None]
  - Decreased appetite [None]
  - Aphantasia [None]
  - Depersonalisation/derealisation disorder [None]
  - Anterograde amnesia [None]
  - Urinary retention [None]
  - Pollakiuria [None]
  - Hypohidrosis [None]
  - Influenza like illness [None]
  - Small fibre neuropathy [None]
  - Insomnia [None]
  - Loss of dreaming [None]

NARRATIVE: CASE EVENT DATE: 20220812
